FAERS Safety Report 18565696 (Version 1)
Quarter: 2020Q4

REPORT INFORMATION
  Report Type: Spontaneous
  Country: US (occurrence: US)
  Receive Date: 20201201
  Receipt Date: 20201201
  Transmission Date: 20210114
  Serious: No
  Sender: FDA-Public Use
  Company Number: None

PATIENT
  Age: 69 Year
  Sex: Female
  Weight: 53.52 kg

DRUGS (1)
  1. EMGALITY [Suspect]
     Active Substance: GALCANEZUMAB-GNLM
     Indication: MIGRAINE
     Route: 058
     Dates: start: 20201130, end: 20201130

REACTIONS (6)
  - Tongue discomfort [None]
  - Papule [None]
  - Oral discomfort [None]
  - Tongue eruption [None]
  - Swollen tongue [None]
  - Tongue coated [None]

NARRATIVE: CASE EVENT DATE: 20201130
